FAERS Safety Report 15220474 (Version 1)
Quarter: 2018Q3

REPORT INFORMATION
  Report Type: Spontaneous
  Country: US (occurrence: US)
  Receive Date: 20180731
  Receipt Date: 20180731
  Transmission Date: 20181010
  Serious: No
  Sender: FDA-Public Use
  Company Number: US-PFIZER INC-2018302587

PATIENT
  Age: 64 Year
  Sex: Female

DRUGS (1)
  1. DROPERIDOL. [Suspect]
     Active Substance: DROPERIDOL
     Dosage: UNK

REACTIONS (4)
  - Dysphoria [Unknown]
  - Agitation [Unknown]
  - Nausea [Unknown]
  - Drug hypersensitivity [Unknown]
